FAERS Safety Report 14216582 (Version 4)
Quarter: 2018Q3

REPORT INFORMATION
  Report Type: Report from Study
  Country: US (occurrence: US)
  Receive Date: 20171122
  Receipt Date: 20180731
  Transmission Date: 20181010
  Serious: Yes (Death, Hospitalization)
  Sender: FDA-Public Use
  Company Number: US-ACTELION-A-NJ2017-157064

PATIENT
  Age: 81 Year
  Sex: Female
  Weight: 68.48 kg

DRUGS (6)
  1. OPSUMIT [Suspect]
     Active Substance: MACITENTAN
     Indication: PULMONARY ARTERIAL HYPERTENSION
     Dosage: 10 MG, QD
     Route: 048
     Dates: start: 201208, end: 20171030
  2. UPTRAVI [Suspect]
     Active Substance: SELEXIPAG
     Dosage: 1400 MCG, BID
     Route: 048
     Dates: start: 20170621
  3. UPTRAVI [Suspect]
     Active Substance: SELEXIPAG
     Dosage: 1600 MCG, BID
     Route: 048
  4. LASIX [Concomitant]
     Active Substance: FUROSEMIDE
  5. SILDENAFIL. [Concomitant]
     Active Substance: SILDENAFIL
     Dosage: UNK
     Dates: start: 20081223
  6. UPTRAVI [Suspect]
     Active Substance: SELEXIPAG
     Indication: PULMONARY ARTERIAL HYPERTENSION
     Dosage: 800 MCG, BID AND 600 MCG, BID
     Route: 048
     Dates: start: 20170325, end: 20171030

REACTIONS (12)
  - Right ventricular failure [Unknown]
  - Livedo reticularis [Unknown]
  - Condition aggravated [Unknown]
  - Chronic respiratory failure [Unknown]
  - Cardiac failure congestive [Fatal]
  - Dyspnoea [Unknown]
  - Pleural effusion [Unknown]
  - Heart rate irregular [Unknown]
  - Tachycardia [Unknown]
  - Dizziness exertional [Unknown]
  - Pulmonary hypertension [Fatal]
  - Oedema peripheral [Unknown]

NARRATIVE: CASE EVENT DATE: 2017
